FAERS Safety Report 16327965 (Version 2)
Quarter: 2019Q2

REPORT INFORMATION
  Report Type: Spontaneous
  Country: CA (occurrence: CA)
  Receive Date: 20190518
  Receipt Date: 20190628
  Transmission Date: 20190711
  Serious: Yes (Other)
  Sender: FDA-Public Use
  Company Number: CA-AUROBINDO-AUR-APL-2019-026299

PATIENT

DRUGS (14)
  1. GABAPENTIN. [Suspect]
     Active Substance: GABAPENTIN
     Indication: PAIN
  2. PREGABALIN CAPSULES [Suspect]
     Active Substance: PREGABALIN
     Indication: BACK PAIN
     Dosage: UNK
     Route: 065
  3. QUETIAPINE FILM-COATED TABLET [Suspect]
     Active Substance: QUETIAPINE
     Indication: SCREAMING
     Dosage: UNK
     Route: 048
  4. QUETIAPINE FILM-COATED TABLET [Suspect]
     Active Substance: QUETIAPINE
     Dosage: 12.5 MILLIGRAM, ONCE A DAY
     Route: 048
  5. HYDROMORPHONE HYDROCHLORIDE. [Suspect]
     Active Substance: HYDROMORPHONE HYDROCHLORIDE
     Dosage: 4 DOSAGE FORM, ONCE A DAY
     Route: 048
  6. QUETIAPINE. [Concomitant]
     Active Substance: QUETIAPINE
     Indication: SCREAMING
     Dosage: 25 MILLIGRAM
     Route: 048
  7. DULOXETINE. [Suspect]
     Active Substance: DULOXETINE
     Indication: BACK PAIN
     Dosage: 30 MILLIGRAM,1 EVERY 1 DAYS
     Route: 048
  8. HYDROMORPH CONTIN [Suspect]
     Active Substance: HYDROMORPHONE
     Indication: BACK PAIN
     Dosage: 6 MILLIGRAM, TWO TIMES A DAY
     Route: 048
  9. HYDROMORPHONE HYDROCHLORIDE. [Suspect]
     Active Substance: HYDROMORPHONE HYDROCHLORIDE
     Indication: BACK PAIN
     Dosage: 1 MILLIGRAM,1 EVERY 4 HOURS
     Route: 048
  10. DULOXETINE. [Suspect]
     Active Substance: DULOXETINE
     Dosage: 1 DOSAGE FORM, ONCE A DAY
     Route: 048
  11. GABAPENTIN. [Suspect]
     Active Substance: GABAPENTIN
     Indication: BACK PAIN
     Dosage: UNK
     Route: 065
  12. QUETIAPINE FILM-COATED TABLET [Suspect]
     Active Substance: QUETIAPINE
     Indication: PAIN
     Dosage: 37.5 MILLIGRAM
     Route: 048
  13. QUETIAPINE. [Concomitant]
     Active Substance: QUETIAPINE
     Indication: SCREAMING
     Dosage: 12.5 MILLIGRAM
     Route: 048
  14. HYDROMORPHONE HYDROCHLORIDE. [Suspect]
     Active Substance: HYDROMORPHONE HYDROCHLORIDE
     Dosage: 1 MILLIGRAM,4 EVERY 1 DAYS
     Route: 048

REACTIONS (6)
  - Drug ineffective for unapproved indication [Recovered/Resolved]
  - Confusional state [Recovered/Resolved]
  - Drug ineffective [Unknown]
  - Pain [Recovered/Resolved]
  - Delirium [Recovered/Resolved]
  - Sedation [Recovered/Resolved]
